FAERS Safety Report 21356041 (Version 4)
Quarter: 2022Q4

REPORT INFORMATION
  Report Type: Report from Study
  Country: US (occurrence: US)
  Receive Date: 20220920
  Receipt Date: 20221115
  Transmission Date: 20230112
  Serious: Yes (Other)
  Sender: FDA-Public Use
  Company Number: US-JAZZ-2022-US-029803

PATIENT
  Age: 18 Year
  Sex: Female

DRUGS (5)
  1. EPIDIOLEX [Suspect]
     Active Substance: CANNABIDIOL
     Indication: Seizure
     Dosage: UNK
     Dates: start: 202209
  2. EPIDIOLEX [Suspect]
     Active Substance: CANNABIDIOL
     Indication: Lennox-Gastaut syndrome
     Dosage: 8 MILLILITER, BID; 100 MG/ML
     Route: 048
     Dates: start: 20220824
  3. EPIDIOLEX [Suspect]
     Active Substance: CANNABIDIOL
     Dosage: 8 MILLILITER, BID
     Route: 048
     Dates: start: 202209
  4. VIMPAT [Concomitant]
     Active Substance: LACOSAMIDE
     Indication: Product used for unknown indication
     Dosage: UNK UNK, BID
  5. CLOMIPRAMINE [Concomitant]
     Active Substance: CLOMIPRAMINE
     Indication: Product used for unknown indication
     Dosage: UNK, BID

REACTIONS (3)
  - Seizure [Recovering/Resolving]
  - Seizure [Unknown]
  - Off label use [Unknown]

NARRATIVE: CASE EVENT DATE: 20220801
